FAERS Safety Report 16208545 (Version 1)
Quarter: 2019Q2

REPORT INFORMATION
  Report Type: Report from Study
  Country: None (occurrence: RO)
  Receive Date: 20190417
  Receipt Date: 20190417
  Transmission Date: 20190711
  Serious: Yes (Other)
  Sender: FDA-Public Use
  Company Number: RO-ABBVIE-19S-135-2730443-00

PATIENT
  Age: 79 Year
  Sex: Female

DRUGS (6)
  1. DUODOPA [Suspect]
     Active Substance: CARBIDOPA\LEVODOPA
     Indication: PARKINSON^S DISEASE
     Dosage: DM=8.00,DC=3.00,ED=4.50,NRED=3;DMN=0.00,DCN=0.00,EDN=0.00,NREDN=0
     Route: 050
     Dates: start: 20130301
  2. CARVEDILOL. [Concomitant]
     Active Substance: CARVEDILOL
     Indication: CARDIOMYOPATHY
     Route: 048
     Dates: start: 20180213
  3. NITROMINT [Concomitant]
     Active Substance: NITROGLYCERIN
     Indication: CARDIAC FAILURE
     Route: 048
     Dates: start: 20180213
  4. ENAP [Concomitant]
     Active Substance: ENALAPRIL
     Indication: CARDIOMYOPATHY
     Route: 048
     Dates: start: 20180213
  5. ISICOM [Concomitant]
     Active Substance: CARBIDOPA\LEVODOPA
     Indication: PARKINSON^S DISEASE
     Route: 048
  6. CLOPIDOGREL [Concomitant]
     Active Substance: CLOPIDOGREL BISULFATE
     Indication: PRODUCT USED FOR UNKNOWN INDICATION
     Route: 048
     Dates: start: 20180213

REACTIONS (8)
  - Osteoporosis [Not Recovered/Not Resolved]
  - Polyneuropathy [Not Recovered/Not Resolved]
  - Contusion [Recovering/Resolving]
  - Fall [Recovered/Resolved]
  - Osteoarthritis [Not Recovered/Not Resolved]
  - Rhabdomyolysis [Recovering/Resolving]
  - Skin lesion [Recovering/Resolving]
  - Androgen deficiency [Recovering/Resolving]

NARRATIVE: CASE EVENT DATE: 20190331
